FAERS Safety Report 7364486-5 (Version None)
Quarter: 2011Q1

REPORT INFORMATION
  Report Type: 
  Country: None (occurrence: None)
  Receive Date: 20110315
  Receipt Date: 20110315
  Transmission Date: 20110831
  Serious: Yes (Other)
  Sender: FDA-Public Use
  Company Number: None

PATIENT
  Age: 77 Year
  Sex: Male
  Weight: 80.7403 kg

DRUGS (7)
  1. AVELOX [Suspect]
     Indication: SINUSITIS
     Dosage: 1 TABLET DAILY PO
     Route: 048
     Dates: start: 20110219, end: 20110219
  2. AVELOX [Suspect]
     Indication: RESPIRATORY TRACT INFECTION
     Dosage: 1 TABLET DAILY PO
     Route: 048
     Dates: start: 20110219, end: 20110219
  3. METROPOLOL [Concomitant]
  4. ZETIA [Concomitant]
  5. HYDROCHLOROTHIAZIDE [Concomitant]
  6. AMLODOPINE BESYLATE [Concomitant]
  7. WELCHOL [Concomitant]

REACTIONS (3)
  - HALLUCINATION [None]
  - AMNESIA [None]
  - CONFUSIONAL STATE [None]
